FAERS Safety Report 8187159-8 (Version None)
Quarter: 2012Q1

REPORT INFORMATION
  Report Type: 
  Country: None (occurrence: None)
  Receive Date: 20120306
  Receipt Date: 20120223
  Transmission Date: 20120608
  Serious: No
  Sender: FDA-Public Use
  Company Number: US-B.I. PHARMACEUTICALS,INC./RIDGEFIELD-2012-BP-03493BP

PATIENT
  Sex: Female
  Weight: 72.6 kg

DRUGS (5)
  1. ZANTAC [Suspect]
     Indication: GASTROOESOPHAGEAL REFLUX DISEASE
     Dosage: 150 MG
     Dates: start: 20111101
  2. ZANTAC [Suspect]
     Indication: DYSPEPSIA
  3. ROBINUL FORTE [Suspect]
     Indication: HIATUS HERNIA
     Dosage: 2 MG
     Dates: start: 20111101
  4. LIPITOR [Suspect]
     Indication: BLOOD CHOLESTEROL
     Dosage: 10 MG
  5. NORVASC [Suspect]
     Indication: BLOOD PRESSURE
     Dosage: 10 MG

REACTIONS (1)
  - NASOPHARYNGITIS [None]
